FAERS Safety Report 21269760 (Version 2)
Quarter: 2022Q3

REPORT INFORMATION
  Report Type: Spontaneous
  Country: GB (occurrence: GB)
  Receive Date: 20220830
  Receipt Date: 20220908
  Transmission Date: 20221027
  Serious: Yes (Other)
  Sender: FDA-Public Use
  Company Number: GB-MHRA-MED-202208250940077430-MLWJF

PATIENT
  Age: 23 Year
  Sex: Female
  Weight: 119 kg

DRUGS (3)
  1. MEDROXYPROGESTERONE\MEDROXYPROGESTERONE ACETATE [Suspect]
     Active Substance: MEDROXYPROGESTERONE\MEDROXYPROGESTERONE ACETATE
     Indication: Injectable contraception
     Dosage: 104 MG
     Dates: start: 20220530, end: 20220530
  2. MEDROXYPROGESTERONE\MEDROXYPROGESTERONE ACETATE [Suspect]
     Active Substance: MEDROXYPROGESTERONE\MEDROXYPROGESTERONE ACETATE
     Dosage: 104 MG
     Dates: start: 20220530, end: 20220530
  3. AMITRIPTYLINE [Concomitant]
     Active Substance: AMITRIPTYLINE
     Indication: Fibromyalgia
     Dosage: UNK

REACTIONS (2)
  - Injection site abscess [Unknown]
  - Lipoma [Recovered/Resolved with Sequelae]

NARRATIVE: CASE EVENT DATE: 20220612
